FAERS Safety Report 5565571-0 (Version None)
Quarter: 2007Q4

REPORT INFORMATION
  Report Type: 
  Country: None (occurrence: None)
  Receive Date: 20071218
  Receipt Date: 20051206
  Transmission Date: 20080405
  Serious: Yes (Death, Congenital Anomaly)
  Sender: FDA-Public Use
  Company Number: US-ROCHE-427721

PATIENT
  Sex: Male
  Weight: 2.1 kg

DRUGS (1)
  1. ISOTRETINOIN [Suspect]
     Indication: DRUG USE FOR UNKNOWN INDICATION

REACTIONS (15)
  - ANOMALY OF EXTERNAL EAR CONGENITAL [None]
  - CLEFT PALATE [None]
  - CONGENITAL NOSE MALFORMATION [None]
  - DANDY-WALKER SYNDROME [None]
  - EAR DISORDER [None]
  - EAR MALFORMATION [None]
  - HEAD DEFORMITY [None]
  - HYDROCEPHALUS [None]
  - HYPERTELORISM OF ORBIT [None]
  - MICROCEPHALY [None]
  - MICROGNATHIA [None]
  - MICROPHTHALMOS [None]
  - NASAL DISORDER [None]
  - PNEUMONIA [None]
  - PNEUMONIA ASPIRATION [None]
